FAERS Safety Report 6956176-5 (Version None)
Quarter: 2010Q3

REPORT INFORMATION
  Report Type: 
  Country: None (occurrence: None)
  Receive Date: 20100830
  Receipt Date: 20100823
  Transmission Date: 20110219
  Serious: Yes (Death, Hospitalization, Other)
  Sender: FDA-Public Use
  Company Number: PHHY2010BR36669

PATIENT
  Sex: Male

DRUGS (6)
  1. FORASEQ [Suspect]
     Indication: BRONCHITIS
     Dosage: ONCE DAILY, IF NECESSARY TWICE DAILY
     Route: 048
     Dates: start: 20100501
  2. A/H1N1 INFLUENZA PANDEMIC VACCINE [Suspect]
     Indication: IMMUNISATION
  3. TACROLIMUS [Concomitant]
     Dosage: 1 MG, BID
     Route: 048
     Dates: start: 20060501, end: 20100523
  4. CELLCEPT [Concomitant]
     Dosage: 2 DF, BID
     Route: 048
     Dates: start: 20060501, end: 20100523
  5. BACTRIM [Concomitant]
     Indication: BACTERIAL INFECTION
     Dosage: 1 DF DAILY
     Route: 048
     Dates: start: 20060501, end: 20070501
  6. ATENOLOL [Concomitant]
     Indication: HYPERTENSION
     Dosage: 1 DF, BID
     Route: 048
     Dates: start: 20060501, end: 20100523

REACTIONS (13)
  - ASTHENIA [None]
  - CEREBROVASCULAR ACCIDENT [None]
  - COMA [None]
  - DYSSTASIA [None]
  - ENDOTRACHEAL INTUBATION [None]
  - HYPOAESTHESIA [None]
  - IMMUNOSUPPRESSION [None]
  - INFECTION [None]
  - LUNG DISORDER [None]
  - PNEUMONIA [None]
  - PULMONARY SEPSIS [None]
  - PYREXIA [None]
  - TOBACCO ABUSE [None]
